FAERS Safety Report 17005583 (Version 1)
Quarter: 2019Q4

REPORT INFORMATION
  Report Type: Spontaneous
  Country: US (occurrence: US)
  Receive Date: 20191107
  Receipt Date: 20191107
  Transmission Date: 20200122
  Serious: Yes (Other)
  Sender: FDA-Public Use
  Company Number: US-GLAXOSMITHKLINE-US2019AMR199307

PATIENT
  Sex: Female

DRUGS (1)
  1. ADVAIR HFA [Suspect]
     Active Substance: FLUTICASONE PROPIONATE\SALMETEROL XINAFOATE
     Indication: PRODUCT USED FOR UNKNOWN INDICATION
     Dosage: UNK
     Route: 065
     Dates: start: 1994

REACTIONS (10)
  - Gastrectomy [Unknown]
  - Pertussis [Unknown]
  - Tumour excision [Unknown]
  - Vocal cord polyp [Unknown]
  - Anaphylactic shock [Unknown]
  - Fibroma [Unknown]
  - Eye pain [Unknown]
  - Neoplasm [Unknown]
  - Tumour ablation [Unknown]
  - Ill-defined disorder [Unknown]

NARRATIVE: CASE EVENT DATE: 1998
